FAERS Safety Report 26027388 (Version 1)
Quarter: 2025Q4

REPORT INFORMATION
  Report Type: Spontaneous
  Country: US (occurrence: None)
  Receive Date: 20251111
  Receipt Date: 20251111
  Transmission Date: 20260117
  Serious: Yes (Other)
  Sender: FDA-CTU
  Company Number: None

PATIENT
  Age: 54 Year
  Sex: Female
  Weight: 81 kg

DRUGS (6)
  1. CYANOCOBALAMIN\GLYCINE\TIRZEPATIDE [Suspect]
     Active Substance: CYANOCOBALAMIN\GLYCINE\TIRZEPATIDE
     Indication: Weight decreased
     Dosage: WEEKLY SUBCUTANEOUS?
     Route: 058
     Dates: start: 20250811, end: 20251028
  2. CYANOCOBALAMIN\GLYCINE\TIRZEPATIDE [Suspect]
     Active Substance: CYANOCOBALAMIN\GLYCINE\TIRZEPATIDE
     Indication: Arthralgia
  3. CYANOCOBALAMIN\GLYCINE\TIRZEPATIDE [Suspect]
     Active Substance: CYANOCOBALAMIN\GLYCINE\TIRZEPATIDE
     Indication: Asthenia
  4. tamoxifen 5 mg [Concomitant]
     Dosage: FREQUENCY : DAILY;?
  5. sumatritan - 500 mg [Concomitant]
  6. B12 [Concomitant]

REACTIONS (2)
  - Retinopathy [None]
  - Therapy interrupted [None]

NARRATIVE: CASE EVENT DATE: 20251101
